FAERS Safety Report 4498951-5 (Version None)
Quarter: 2004Q4

REPORT INFORMATION
  Report Type: 
  Country: None (occurrence: None)
  Receive Date: 20041108
  Receipt Date: 20041025
  Transmission Date: 20050328
  Serious: Yes (Hospitalization)
  Sender: FDA-Public Use
  Company Number: 2004241460FR

PATIENT
  Age: 78 Year
  Sex: Female

DRUGS (5)
  1. ZYVOXID (LINEZOLID) TABLET [Suspect]
     Indication: INFECTION
     Dosage: BID, ORAL
     Route: 048
     Dates: start: 20040324, end: 20040604
  2. PROMETHAZINE HCL [Suspect]
     Dosage: 25 MG, DAILY
     Dates: end: 20040605
  3. PYOSTACINE(PRISTINAMYCIN) [Suspect]
     Indication: INFECTION
     Dosage: SEE IMAGE, ORAL
     Route: 048
     Dates: start: 20040324, end: 20040505
  4. PYOSTACINE(PRISTINAMYCIN) [Suspect]
     Indication: INFECTION
     Dosage: SEE IMAGE, ORAL
     Route: 048
     Dates: start: 20040506, end: 20040604
  5. ROCEPHIN [Suspect]
     Indication: INFECTION
     Dosage: 1 G, BID, INTRAMUSCULAR
     Route: 030
     Dates: start: 20040324, end: 20040604

REACTIONS (18)
  - ACIDOSIS [None]
  - ANAEMIA [None]
  - ANOREXIA [None]
  - BICYTOPENIA [None]
  - BLOOD BICARBONATE DECREASED [None]
  - BLOOD CREATININE INCREASED [None]
  - BLOOD POTASSIUM INCREASED [None]
  - BONE MARROW TOXICITY [None]
  - DYSPNOEA EXERTIONAL [None]
  - GAMMA-GLUTAMYLTRANSFERASE INCREASED [None]
  - GENERAL PHYSICAL HEALTH DETERIORATION [None]
  - HAPTOGLOBIN INCREASED [None]
  - IMMUNOGLOBULINS INCREASED [None]
  - INFLAMMATION [None]
  - NAUSEA [None]
  - SERUM FERRITIN INCREASED [None]
  - SPINAL MYELOGRAM ABNORMAL [None]
  - THROMBOCYTOPENIA [None]
